FAERS Safety Report 4688508-5 (Version None)
Quarter: 2005Q2

REPORT INFORMATION
  Report Type: 
  Country: None (occurrence: None)
  Receive Date: 20050609
  Receipt Date: 20050525
  Transmission Date: 20051028
  Serious: Yes (Hospitalization)
  Sender: FDA-Public Use
  Company Number: 430010M05FRA

PATIENT
  Age: 56 Year
  Sex: Female

DRUGS (3)
  1. NOVANTRONE [Suspect]
     Indication: BREAST CANCER FEMALE
     Dosage: INTRAVENOUS (NOT OTHERWISE SPECIFIED)
     Route: 042
  2. FLUOROURACIL [Suspect]
     Indication: BREAST CANCER FEMALE
     Dosage: INTRAVENOUS (NOT OTHERWISE SPECIFIED)
     Route: 042
  3. ENDOXAN (CYCLOPHSPHAMIDE) [Suspect]
     Indication: BREAST CANCER FEMALE
     Dosage: INTRAVENOUS (NOT OTHERWISE SPECIFIED)
     Route: 042

REACTIONS (1)
  - GRANULOMA ANNULARE [None]
